FAERS Safety Report 16766871 (Version 7)
Quarter: 2020Q3

REPORT INFORMATION
  Report Type: Spontaneous
  Country: US (occurrence: US)
  Receive Date: 20190903
  Receipt Date: 20200825
  Transmission Date: 20201102
  Serious: Yes (Other)
  Sender: FDA-Public Use
  Company Number: US-PFIZER INC-2019313367

PATIENT
  Age: 44 Year
  Sex: Female
  Weight: 72 kg

DRUGS (7)
  1. BUDESONIDE. [Concomitant]
     Active Substance: BUDESONIDE
     Indication: ABDOMINAL DISCOMFORT
     Dosage: UNK
  2. LYRICA [Suspect]
     Active Substance: PREGABALIN
     Indication: SLEEP DISORDER
     Dosage: 75 MG, DAILY
     Route: 048
  3. LYRICA [Suspect]
     Active Substance: PREGABALIN
     Indication: FIBROMYALGIA
     Dosage: 100 MG, 3X/DAY, (100 MG, EVERY EIGHT HOURS/300 MG A DAY; 100 MG, EVERY EIGHT HOURS)
  4. HYOSCYAMINE. [Concomitant]
     Active Substance: HYOSCYAMINE
     Dosage: 0.125 MG, EVERY 4 HRS  (EVERY DAY)
  5. ATORVASTATIN [Concomitant]
     Active Substance: ATORVASTATIN
     Indication: BLOOD CHOLESTEROL ABNORMAL
     Dosage: 20 MG, 1X/DAY
  6. PRILOSEC [Concomitant]
     Active Substance: OMEPRAZOLE MAGNESIUM
     Dosage: UNK UNK, 1X/DAY (IN THE MORNING BUT I^M NOT DOING THAT RIGHT NOW)
  7. LYRICA [Suspect]
     Active Substance: PREGABALIN
     Indication: PAIN

REACTIONS (7)
  - Product dose omission issue [Unknown]
  - Fatigue [Unknown]
  - Weight increased [Unknown]
  - Blood immunoglobulin M increased [Unknown]
  - Drug effective for unapproved indication [Unknown]
  - Peripheral swelling [Unknown]
  - Condition aggravated [Unknown]
